FAERS Safety Report 6066508-0 (Version None)
Quarter: 2009Q1

REPORT INFORMATION
  Report Type: 
  Country: None (occurrence: None)
  Receive Date: 20090205
  Receipt Date: 20090127
  Transmission Date: 20090719
  Serious: Yes (Other)
  Sender: FDA-Public Use
  Company Number: FR-ABBOTT-09P-056-0500071-00

PATIENT
  Age: 14 Year
  Sex: Female

DRUGS (1)
  1. MICROPAKINE [Suspect]
     Indication: DRUG USE FOR UNKNOWN INDICATION
     Route: 048
     Dates: start: 20080701

REACTIONS (3)
  - EPILEPSY [None]
  - EXPIRED DRUG ADMINISTERED [None]
  - LIVER DISORDER [None]
